FAERS Safety Report 20750026 (Version 1)
Quarter: 2022Q2

REPORT INFORMATION
  Report Type: Spontaneous
  Country: US (occurrence: None)
  Receive Date: 20220425
  Receipt Date: 20220425
  Transmission Date: 20220721
  Serious: Yes (Other)
  Sender: FDA-Public Use
  Company Number: None

PATIENT
  Age: 54 Year
  Sex: Female
  Weight: 72.9 kg

DRUGS (5)
  1. METRONIDAZOLE [Suspect]
     Active Substance: METRONIDAZOLE
     Indication: Rosacea
     Dosage: OTHER QUANTITY : 1 PEA SIZED AMOUNT;?FREQUENCY : AT BEDTIME;?
     Route: 061
     Dates: start: 20211108, end: 20220424
  2. NOVOLOG [Concomitant]
  3. COENZYME Q10 [Concomitant]
     Active Substance: DIETARY SUPPLEMENT\UBIDECARENONE
  4. ALPHA LIPOIC ACID [Concomitant]
     Active Substance: .ALPHA.-LIPOIC ACID
  5. VITAMINS [Concomitant]
     Active Substance: VITAMINS

REACTIONS (5)
  - Muscular weakness [None]
  - Myalgia [None]
  - Arthralgia [None]
  - Chest discomfort [None]
  - Myopathy [None]

NARRATIVE: CASE EVENT DATE: 20220418
